FAERS Safety Report 24232905 (Version 1)
Quarter: 2024Q3

REPORT INFORMATION
  Report Type: Spontaneous
  Country: US (occurrence: None)
  Receive Date: 20240820
  Receipt Date: 20240820
  Transmission Date: 20241017
  Serious: Yes (Other)
  Sender: Public
  Company Number: None

PATIENT
  Age: 59 Year
  Sex: Male
  Weight: 80.1 kg

DRUGS (9)
  1. GADOLINIUM [Suspect]
     Active Substance: GADOLINIUM
     Indication: Magnetic resonance imaging
     Dosage: OTHER ROUTE : IV;?
     Route: 050
     Dates: start: 20240816
  2. Metphorman [Concomitant]
  3. listinopril [Concomitant]
  4. JARDIANCE [Concomitant]
     Active Substance: EMPAGLIFLOZIN
  5. JANUVIA [Concomitant]
     Active Substance: SITAGLIPTIN PHOSPHATE
  6. DUTASTERIDE [Concomitant]
     Active Substance: DUTASTERIDE
  7. ESTROGENS [Concomitant]
     Active Substance: ESTROGENS
  8. PROGESTERONE [Concomitant]
     Active Substance: PROGESTERONE
  9. CANNABIS SATIVA SUBSP. INDICA TOP [Concomitant]
     Active Substance: CANNABIS SATIVA SUBSP. INDICA TOP

REACTIONS (4)
  - Vertigo [None]
  - Nausea [None]
  - Vomiting [None]
  - Contrast media reaction [None]

NARRATIVE: CASE EVENT DATE: 20240816
